FAERS Safety Report 16981008 (Version 2)
Quarter: 2019Q4

REPORT INFORMATION
  Report Type: Spontaneous
  Country: US (occurrence: US)
  Receive Date: 20191031
  Receipt Date: 20191204
  Transmission Date: 20200122
  Serious: Yes (Other)
  Sender: FDA-Public Use
  Company Number: US-PFIZER INC-2019452536

PATIENT
  Age: 65 Year
  Sex: Female
  Weight: 67.13 kg

DRUGS (2)
  1. PREPARATION H RAPID RELIEF [Suspect]
     Active Substance: GLYCERIN\LIDOCAINE
     Indication: ANORECTAL DISCOMFORT
  2. PREPARATION H RAPID RELIEF [Suspect]
     Active Substance: GLYCERIN\LIDOCAINE
     Indication: HAEMORRHOIDS
     Dosage: UNK, AS NEEDED
     Dates: start: 2019

REACTIONS (3)
  - Drug hypersensitivity [Not Recovered/Not Resolved]
  - Haemorrhage [Not Recovered/Not Resolved]
  - Therapeutic product effect decreased [Not Recovered/Not Resolved]

NARRATIVE: CASE EVENT DATE: 20191017
